FAERS Safety Report 9857503 (Version 3)
Quarter: 2014Q1

REPORT INFORMATION
  Report Type: Spontaneous
  Country: GB (occurrence: GB)
  Receive Date: 20140131
  Receipt Date: 20140310
  Transmission Date: 20141002
  Serious: Yes (Hospitalization, Other)
  Sender: FDA-Public Use
  Company Number: PHFR2014GB001036

PATIENT
  Age: 40 Year
  Sex: Female

DRUGS (6)
  1. CLOZARIL [Suspect]
     Dosage: 400 MG, DAILY
     Route: 048
     Dates: start: 20040319, end: 20140127
  2. SERTRALINE [Concomitant]
     Indication: OBSESSIVE-COMPULSIVE DISORDER
     Dosage: 200 MG, DAILY
     Route: 048
  3. LANSOPRAZOLE [Concomitant]
     Dosage: 15 MG, DAILY
     Route: 048
  4. FERROUS SULPHATE [Concomitant]
     Dosage: 600 MG, DAILY
     Route: 048
  5. LACTULOSE [Concomitant]
     Dosage: 30 ML, DAILY
     Route: 048
  6. SENNA [Concomitant]
     Dosage: 2 DF, DALIY
     Route: 048

REACTIONS (6)
  - Back pain [Unknown]
  - Cholelithiasis [Unknown]
  - Chest pain [Recovering/Resolving]
  - Hepatitis [Unknown]
  - Liver function test abnormal [Unknown]
  - Hepatic enzyme increased [Unknown]
